FAERS Safety Report 6158417-3 (Version None)
Quarter: 2009Q2

REPORT INFORMATION
  Report Type: 
  Country: None (occurrence: None)
  Receive Date: 20090417
  Receipt Date: 20090414
  Transmission Date: 20091009
  Serious: Yes (Hospitalization, Other)
  Sender: FDA-Public Use
  Company Number: US-BRISTOL-MYERS SQUIBB COMPANY-14587893

PATIENT
  Age: 7 Decade
  Sex: Male

DRUGS (3)
  1. ERBITUX [Suspect]
     Indication: OESOPHAGEAL CANCER METASTATIC
     Dosage: DURATION = 41/2 YEARS
  2. TAXOL [Suspect]
     Indication: OESOPHAGEAL CANCER METASTATIC
     Dates: start: 20080101
  3. RADIATION THERAPY [Suspect]
     Indication: OESOPHAGEAL CANCER METASTATIC
     Dates: start: 20080101

REACTIONS (3)
  - DYSPNOEA [None]
  - HYPOXIA [None]
  - OESOPHAGEAL CARCINOMA RECURRENT [None]
